FAERS Safety Report 8478286-6 (Version None)
Quarter: 2012Q2

REPORT INFORMATION
  Report Type: 
  Country: None (occurrence: None)
  Receive Date: 20120629
  Receipt Date: 20120621
  Transmission Date: 20120825
  Serious: Yes (Hospitalization, Other)
  Sender: FDA-Public Use
  Company Number: GB-UCBSA-047883

PATIENT
  Age: 32 Year
  Sex: Male
  Weight: 61 kg

DRUGS (16)
  1. CHLORHEXIDINE GLUCONATE [Concomitant]
  2. ALFENTANIL [Concomitant]
  3. FUROSEMIDE [Concomitant]
  4. MAGNESIUM SULFATE [Concomitant]
  5. MAGNESIUM SULFATE [Concomitant]
  6. LEVETIRACETAM [Suspect]
     Indication: CONVULSION
     Dates: start: 20111103, end: 20111103
  7. METOCLOPRAMIDE [Concomitant]
  8. VALPROATE SODIUM [Suspect]
     Route: 042
     Dates: start: 20111031, end: 20111103
  9. VANCOMYCIN [Suspect]
     Dosage: 3 INFUSIONS
     Route: 042
     Dates: start: 20111101, end: 20111107
  10. PROPOFOL [Concomitant]
  11. SENNA-MINT WAF [Concomitant]
  12. MIDAZOLAM [Concomitant]
  13. OMEPRAZOLE [Concomitant]
  14. DOCUSATE [Concomitant]
  15. PABRINEX [Concomitant]
  16. PRONTODERM [Concomitant]

REACTIONS (6)
  - TUBULOINTERSTITIAL NEPHRITIS [None]
  - HEPATITIS [None]
  - SKIN REACTION [None]
  - DRUG RASH WITH EOSINOPHILIA AND SYSTEMIC SYMPTOMS [None]
  - RASH ERYTHEMATOUS [None]
  - RENAL IMPAIRMENT [None]
